FAERS Safety Report 19451158 (Version 1)
Quarter: 2021Q2

REPORT INFORMATION
  Report Type: Spontaneous
  Country: US (occurrence: US)
  Receive Date: 20210622
  Receipt Date: 20210622
  Transmission Date: 20210717
  Serious: No
  Sender: FDA-Public Use
  Company Number: None

PATIENT
  Age: 64 Year
  Sex: Female
  Weight: 47.81 kg

DRUGS (11)
  1. MESNEX [Suspect]
     Active Substance: MESNA
     Indication: UTERINE CANCER
     Route: 048
     Dates: start: 20210408, end: 20210622
  2. IFOSFAMIDE. [Concomitant]
     Active Substance: IFOSFAMIDE
  3. MIRALAX [Concomitant]
     Active Substance: POLYETHYLENE GLYCOL 3350
  4. ANORO ELLIPTA [Concomitant]
     Active Substance: UMECLIDINIUM BROMIDE\VILANTEROL TRIFENATATE
  5. HYDROCODONE [Concomitant]
     Active Substance: HYDROCODONE
  6. QVAR REDIHALER [Concomitant]
     Active Substance: BECLOMETHASONE DIPROPIONATE
  7. SENNA [Concomitant]
     Active Substance: SENNA LEAF\SENNOSIDES\SENNOSIDES A AND B
  8. ONDANSETRON [Concomitant]
     Active Substance: ONDANSETRON
  9. ALPRAZOLAM. [Concomitant]
     Active Substance: ALPRAZOLAM
  10. ALBUTEROL SULFATE HFA [Concomitant]
     Active Substance: ALBUTEROL SULFATE
  11. PACLITAXEL. [Concomitant]
     Active Substance: PACLITAXEL

REACTIONS (1)
  - Disease progression [None]

NARRATIVE: CASE EVENT DATE: 20210622
